FAERS Safety Report 4722222-2 (Version None)
Quarter: 2005Q3

REPORT INFORMATION
  Report Type: 
  Country: None (occurrence: None)
  Receive Date: 20050722
  Receipt Date: 20040909
  Transmission Date: 20060218
  Serious: No
  Sender: FDA-Public Use
  Company Number: US-GLAXOSMITHKLINE-A0525052A

PATIENT
  Age: 58 Year
  Sex: Female

DRUGS (10)
  1. AVANDIA [Suspect]
     Dosage: 4MG PER DAY
     Route: 048
     Dates: start: 20040801
  2. GLUCOTROL [Concomitant]
  3. LEVOTHYROXINE SODIUM [Concomitant]
  4. GLUCOPHAGE [Concomitant]
  5. CELEBREX [Concomitant]
  6. LIPITOR [Concomitant]
  7. POTASSIUM CHLORIDE [Concomitant]
  8. ACCUPRIL [Concomitant]
  9. ATENOLOL [Concomitant]
  10. NORVASC [Concomitant]

REACTIONS (1)
  - DERMAL CYST [None]
